FAERS Safety Report 24328849 (Version 1)
Quarter: 2024Q3

REPORT INFORMATION
  Report Type: Spontaneous
  Country: FR (occurrence: FR)
  Receive Date: 20240917
  Receipt Date: 20240917
  Transmission Date: 20241016
  Serious: Yes (Death, Other)
  Sender: BRISTOL MYERS SQUIBB
  Company Number: None

PATIENT
  Age: 81 Year
  Sex: Female

DRUGS (25)
  1. LENALIDOMIDE [Interacting]
     Active Substance: LENALIDOMIDE
     Indication: Lymphoma
     Dosage: 1 PER DAY FOR 21 DAYS AND A ONE-WEEK BREAK
     Route: 048
     Dates: start: 20230331, end: 20230420
  2. LENALIDOMIDE [Interacting]
     Active Substance: LENALIDOMIDE
     Route: 048
     Dates: start: 20230428, end: 20230518
  3. LENALIDOMIDE [Interacting]
     Active Substance: LENALIDOMIDE
     Route: 048
     Dates: start: 20230526, end: 20230615
  4. TAFASITAMAB [Interacting]
     Active Substance: TAFASITAMAB
     Indication: Lymphoma
     Route: 042
     Dates: start: 20230331, end: 20230331
  5. TAFASITAMAB [Interacting]
     Active Substance: TAFASITAMAB
     Route: 042
     Dates: start: 20230404, end: 20230404
  6. TAFASITAMAB [Interacting]
     Active Substance: TAFASITAMAB
     Route: 042
     Dates: start: 20230407, end: 20230407
  7. TAFASITAMAB [Interacting]
     Active Substance: TAFASITAMAB
     Route: 042
     Dates: start: 20230414, end: 20230414
  8. TAFASITAMAB [Interacting]
     Active Substance: TAFASITAMAB
     Route: 042
     Dates: start: 20230421, end: 20230421
  9. TAFASITAMAB [Interacting]
     Active Substance: TAFASITAMAB
     Route: 042
     Dates: start: 20230428, end: 20230428
  10. TAFASITAMAB [Interacting]
     Active Substance: TAFASITAMAB
     Route: 042
     Dates: start: 20230505, end: 20230505
  11. TAFASITAMAB [Interacting]
     Active Substance: TAFASITAMAB
     Route: 042
     Dates: start: 20230512, end: 20230512
  12. TAFASITAMAB [Interacting]
     Active Substance: TAFASITAMAB
     Route: 042
     Dates: start: 20230519, end: 20230519
  13. TAFASITAMAB [Interacting]
     Active Substance: TAFASITAMAB
     Route: 042
     Dates: start: 20230526, end: 20230526
  14. TAFASITAMAB [Interacting]
     Active Substance: TAFASITAMAB
     Route: 042
     Dates: start: 20230602, end: 20230602
  15. METHYLPREDNISOLONE [Interacting]
     Active Substance: METHYLPREDNISOLONE
     Indication: Lymphoma
     Route: 042
     Dates: start: 20230331, end: 20230331
  16. METHYLPREDNISOLONE [Interacting]
     Active Substance: METHYLPREDNISOLONE
     Route: 042
     Dates: start: 20230404, end: 20230404
  17. METHYLPREDNISOLONE [Interacting]
     Active Substance: METHYLPREDNISOLONE
     Route: 042
     Dates: start: 20230407, end: 20230407
  18. METHYLPREDNISOLONE [Interacting]
     Active Substance: METHYLPREDNISOLONE
     Route: 042
     Dates: start: 20230414, end: 20230414
  19. METHYLPREDNISOLONE [Interacting]
     Active Substance: METHYLPREDNISOLONE
     Route: 042
     Dates: start: 20230421, end: 20230421
  20. METHYLPREDNISOLONE [Interacting]
     Active Substance: METHYLPREDNISOLONE
     Route: 042
     Dates: start: 20230428, end: 20230428
  21. METHYLPREDNISOLONE [Interacting]
     Active Substance: METHYLPREDNISOLONE
     Route: 042
     Dates: start: 20230505, end: 20230505
  22. METHYLPREDNISOLONE [Interacting]
     Active Substance: METHYLPREDNISOLONE
     Route: 042
     Dates: start: 20230512, end: 20230512
  23. METHYLPREDNISOLONE [Interacting]
     Active Substance: METHYLPREDNISOLONE
     Route: 042
     Dates: start: 20230519, end: 20230519
  24. METHYLPREDNISOLONE [Interacting]
     Active Substance: METHYLPREDNISOLONE
     Route: 042
     Dates: start: 20230526, end: 20230526
  25. METHYLPREDNISOLONE [Interacting]
     Active Substance: METHYLPREDNISOLONE
     Route: 042
     Dates: start: 20230602, end: 20230602

REACTIONS (2)
  - Drug interaction [Fatal]
  - Sepsis [Fatal]

NARRATIVE: CASE EVENT DATE: 20230331
